FAERS Safety Report 9366821 (Version 1)
Quarter: 2013Q2

REPORT INFORMATION
  Report Type: Spontaneous
  Country: GB (occurrence: None)
  Receive Date: 20130620
  Receipt Date: 20130620
  Transmission Date: 20140414
  Serious: Yes (Hospitalization, Other)
  Sender: FDA-Public Use
  Company Number: DKLU1091659

PATIENT
  Age: 32 Month
  Sex: Female

DRUGS (24)
  1. COSMEGEN [Suspect]
     Indication: SARCOMA METASTATIC
     Dosage: DAY 1 OF CYCLE DOSAGE:, INTRAVENOUS (NOT OTHERWISE SPECIFIED)?
     Dates: start: 20110712
  2. BEVACIZUMAB [Suspect]
     Indication: SARCOMA METASTATIC
     Dosage: 65 MG MILLIGRAM(S), LAST DOSE PRIOR TO SAE:?20/JUN/2012,, INTRAVENOUS (NOT OTHERWISE SPECIFI
     Route: 042
     Dates: start: 20110712
  3. IFOSFAMIDE [Suspect]
     Indication: SARCOMA METASTATIC
     Dosage: PER M2, DAYS 1 AND 2. LAST DOSE PRIOR TO, INTRAVENOUS (NOT OTHERWISE SPECIFIED)
     Route: 042
     Dates: start: 20110712
  4. VINCRISTINE (VINCRISTINE) (UNKNOWN) [Suspect]
     Indication: SARCOMA METASTATIC
     Dosage: DOSAGE CUMM: 1.5 MG/M2, FREQUENCY DAYS 1, INTRAVENOUS (NOT OTHERWISE SPECIFIED)
     Route: 042
     Dates: start: 20110712
  5. DOXORUBICIN [Suspect]
     Indication: SARCOMA METASTATIC
     Dosage: 30 MG MILLIGRAM(S), PER M2, DAYS 1 AND 2, LAST DOSE PRIOR TO, INTRAVENOUS (NOT OTHERWISE SPECIFIED)
     Route: 042
     Dates: start: 20110712
  6. MESNA [Suspect]
     Indication: SARCOMA METASTATIC
     Dosage: DAYS 1 AND 2, LAST DOSE PRIOR TO SAE WAS,?INTRAVENOUS (NOT OTHERWISE SPECIFIED)
     Route: 042
     Dates: start: 20110712
  7. VINORELBINE [Suspect]
     Indication: SARCOMA METASTATIC
     Dosage: 11 MG MILLIGRAM(S), LAST DOSE PRIOR TO SAE: 20/JUN/2012,, INTRAVENOUS (NOT OTHERWISE SPECIFIED)
     Route: 042
     Dates: start: 20120301
  8. CYCLOPHOSPHAMIDE (CYCLOPHOSPHAMIDE) [Suspect]
     Indication: SARCOMA METASTATIC
     Dosage: LAST DOSE PRIOR TO SAE: 23/JUN/2012,, ORAL
     Route: 048
     Dates: start: 20120301
  9. PARACETAMOL (PARACETAMOL) [Concomitant]
  10. ONDANSETRON (ONDANSETRON) [Concomitant]
  11. FLUCONAZOLE (FLUCONAZOLE) [Concomitant]
  12. LEVOMEPROMAZINE (LEVOMEPROMAZINE) [Concomitant]
  13. CO-TRIMOXAZOLE (CO-TRIMOXAZOLE) [Concomitant]
  14. DOCUSATE (DOCUSATE) [Concomitant]
  15. GENTAMYCIN (GENTAMICIN SULFATE) [Concomitant]
  16. PIPERACILLIN/TAZOBACTAM(PIP/TAZO) [Concomitant]
  17. MORPHINE [Concomitant]
  18. MOVICOL [Concomitant]
  19. G-CSF (GRANULOCYTE COLONY STIMULATING FACTOR) [Concomitant]
  20. EMOLLIENT CREAM (EMOLLIENTS AND PROTECTIVES) [Concomitant]
  21. DIHYDROCODEINE (DIHYDROCODEINE) [Concomitant]
  22. CEFIXIME (CEFIXIME) [Concomitant]
  23. TEMOZOLOMIDE (TEMOZOLOMIDE) [Concomitant]
  24. IRINOTECAN (IRINOTECAN HYDROCHLORIDE) [Concomitant]

REACTIONS (7)
  - Mucosal inflammation [None]
  - Febrile neutropenia [None]
  - Haemoglobin decreased [None]
  - Platelet count decreased [None]
  - Blood culture positive [None]
  - Candida infection [None]
  - Epistaxis [None]
